FAERS Safety Report 4698804-3 (Version None)
Quarter: 2005Q2

REPORT INFORMATION
  Report Type: 
  Country: None (occurrence: None)
  Receive Date: 20050621
  Receipt Date: 20050204
  Transmission Date: 20051028
  Serious: Yes (Other)
  Sender: FDA-Public Use
  Company Number: PHEH2005US01708

PATIENT
  Age: 87 Year
  Sex: Female

DRUGS (12)
  1. EXELON [Suspect]
     Indication: DEMENTIA ALZHEIMER'S TYPE
     Dosage: SEE IMAGE
     Route: 048
     Dates: start: 20050101, end: 20050203
  2. NAMENDA (MEMANTINE HYDROCHLORIDE) [Concomitant]
  3. REMERON [Concomitant]
  4. ACCUPRIL [Concomitant]
  5. LIPITOR /UNK/ (ATORVASTATIN0 [Concomitant]
  6. PENTOXIFYLLINE [Concomitant]
  7. AZATHIOPRINE [Concomitant]
  8. MVI (VITAMIN NOS) [Concomitant]
  9. SURFAK (DOCUSATE CALCIUM) [Concomitant]
  10. BETOPTICS-S (BETAXOLOL HYDROCHLORIDE) [Concomitant]
  11. GINKYO (GINKGO BILOBA) [Concomitant]
  12. GLUTAMINE (LEVOGLUTAMIDE) [Concomitant]

REACTIONS (4)
  - COGNITIVE DISORDER [None]
  - CONFUSIONAL STATE [None]
  - DISTURBANCE IN ATTENTION [None]
  - DRUG INEFFECTIVE [None]
